FAERS Safety Report 5497649-4 (Version None)
Quarter: 2007Q4

REPORT INFORMATION
  Report Type: 
  Country: None (occurrence: None)
  Receive Date: 20071025
  Receipt Date: 20071012
  Transmission Date: 20080405
  Serious: Yes (Hospitalization)
  Sender: FDA-Public Use
  Company Number: US-RANBAXY-2007RR-10730

PATIENT

DRUGS (11)
  1. IBUPROFEN [Suspect]
     Indication: CHILLS
     Dosage: 400 MG, QID
  2. IBUPROFEN [Suspect]
     Indication: MALAISE
  3. ACETAMINOPHEN/PSEUDOEPHEDRINE HCI/DEXTROMETHORPHAN HBR [Concomitant]
  4. TRIMETHOBENZAMIDE [Concomitant]
     Route: 030
  5. CO-TRIMOXAZOLE [Concomitant]
  6. HYOSCYAMINE [Concomitant]
  7. PROCHLORPERAZINE [Concomitant]
  8. RANITIDINE HCL [Concomitant]
     Route: 042
  9. CEFTRIAXONE [Concomitant]
  10. ONDANSETRON [Concomitant]
  11. METHYLPREDNISOLONE [Concomitant]

REACTIONS (1)
  - RENAL TUBULAR NECROSIS [None]
